FAERS Safety Report 21670213 (Version 2)
Quarter: 2022Q4

REPORT INFORMATION
  Report Type: Spontaneous
  Country: FR (occurrence: FR)
  Receive Date: 20221201
  Receipt Date: 20221216
  Transmission Date: 20230113
  Serious: Yes (Death, Other)
  Sender: FDA-Public Use
  Company Number: FR-TEVA-2022-FR-2830847

PATIENT
  Age: 43 Year
  Sex: Male

DRUGS (4)
  1. CISPLATIN [Suspect]
     Active Substance: CISPLATIN
     Indication: Adrenocortical carcinoma
     Route: 065
  2. ETOPOSIDE [Suspect]
     Active Substance: ETOPOSIDE
     Indication: Adrenocortical carcinoma
     Route: 065
  3. MITOTANE [Suspect]
     Active Substance: MITOTANE
     Indication: Adrenocortical carcinoma
     Dosage: ADMINISTERED 1.5 TO 4.5 G.
     Route: 065
  4. OSILODROSTAT [Concomitant]
     Active Substance: OSILODROSTAT
     Indication: Adrenocortical carcinoma
     Dosage: 40 MILLIGRAM DAILY;
     Route: 065

REACTIONS (1)
  - Drug ineffective [Fatal]
